FAERS Safety Report 24731783 (Version 2)
Quarter: 2024Q4

REPORT INFORMATION
  Report Type: Report from Study
  Country: US (occurrence: US)
  Receive Date: 20241213
  Receipt Date: 20241231
  Transmission Date: 20250115
  Serious: Yes (Other)
  Sender: ABBVIE
  Company Number: US-ABBVIE-6041386

PATIENT
  Sex: Female

DRUGS (1)
  1. UBRELVY [Suspect]
     Active Substance: UBROGEPANT
     Indication: Migraine
     Dosage: STRENGTH: 100 MILLIGRAM ?TAKE ONE TABLET BY MOUTH AS NEEDED. IF NEEDED, 2ND DOSE MAY BE TAKEN 2 H...
     Route: 048

REACTIONS (2)
  - Knee operation [Recovering/Resolving]
  - Surgery [Recovering/Resolving]

NARRATIVE: CASE EVENT DATE: 20240101
